FAERS Safety Report 6105363-7 (Version None)
Quarter: 2009Q1

REPORT INFORMATION
  Report Type: 
  Country: None (occurrence: None)
  Receive Date: 20090306
  Receipt Date: 20090224
  Transmission Date: 20090719
  Serious: Yes (Other)
  Sender: FDA-Public Use
  Company Number: FR-PFIZER INC-2009174571

PATIENT

DRUGS (5)
  1. AZITHROMYCIN [Suspect]
     Dosage: UNK
     Dates: start: 20090114
  2. PIVALONE [Suspect]
     Dates: start: 20090114, end: 20090118
  3. TRAVOPROST [Concomitant]
  4. HELICIDINE [Concomitant]
  5. DESLORATADINE [Concomitant]

REACTIONS (7)
  - DRUG INEFFECTIVE [None]
  - ECZEMA [None]
  - EPISTAXIS [None]
  - FACE OEDEMA [None]
  - HYPERSENSITIVITY [None]
  - LARYNGEAL DYSPNOEA [None]
  - NASAL CONGESTION [None]
